FAERS Safety Report 5449908-9 (Version None)
Quarter: 2007Q3

REPORT INFORMATION
  Report Type: 
  Country: None (occurrence: None)
  Receive Date: 20070907
  Receipt Date: 20070823
  Transmission Date: 20080115
  Serious: Yes (Death)
  Sender: FDA-Public Use
  Company Number: 143

PATIENT
  Sex: Male

DRUGS (1)
  1. FAZACLO 25 MG + 100 MG ODT  AZUR PHARMA [Suspect]
     Dosage: 125 MG PO DAILY
     Dates: start: 20070731, end: 20070822

REACTIONS (1)
  - DEATH [None]
